FAERS Safety Report 19873510 (Version 1)
Quarter: 2021Q3

REPORT INFORMATION
  Report Type: Spontaneous
  Country: US (occurrence: US)
  Receive Date: 20210922
  Receipt Date: 20210922
  Transmission Date: 20211014
  Serious: No
  Sender: FDA-Public Use
  Company Number: US-PFIZER INC-202101175541

PATIENT
  Age: 65 Year
  Sex: Female
  Weight: 54.43 kg

DRUGS (1)
  1. ESTRING [Suspect]
     Active Substance: ESTRADIOL
     Dosage: UNK

REACTIONS (10)
  - Vomiting [Recovering/Resolving]
  - Chills [Recovering/Resolving]
  - Intentional medical device removal by patient [Unknown]
  - Feeling hot [Unknown]
  - Malaise [Unknown]
  - Hyperhidrosis [Recovering/Resolving]
  - Head discomfort [Unknown]
  - Nausea [Recovering/Resolving]
  - Vertigo [Unknown]
  - Diarrhoea [Unknown]

NARRATIVE: CASE EVENT DATE: 20210907
